FAERS Safety Report 14744978 (Version 3)
Quarter: 2019Q2

REPORT INFORMATION
  Report Type: Spontaneous
  Country: US (occurrence: US)
  Receive Date: 20180411
  Receipt Date: 20190506
  Transmission Date: 20190711
  Serious: No
  Sender: FDA-Public Use
  Company Number: US-PFIZER INC-2018144474

PATIENT
  Age: 53 Year
  Sex: Female
  Weight: 127.7 kg

DRUGS (1)
  1. PHENYTOIN. [Suspect]
     Active Substance: PHENYTOIN
     Dosage: UNK

REACTIONS (1)
  - Drug ineffective [Unknown]
